FAERS Safety Report 19898268 (Version 1)
Quarter: 2021Q3

REPORT INFORMATION
  Report Type: Spontaneous
  Country: ES (occurrence: ES)
  Receive Date: 20210930
  Receipt Date: 20210930
  Transmission Date: 20211014
  Serious: Yes (Other)
  Sender: FDA-Public Use
  Company Number: ES-NOVOPROD-848719

PATIENT
  Age: 31 Year
  Sex: Male
  Weight: 89 kg

DRUGS (5)
  1. TOUJEO [Concomitant]
     Active Substance: INSULIN GLARGINE
     Indication: TYPE 1 DIABETES MELLITUS
     Dosage: 30 IU, QD (AT BREAKFAST)
     Route: 065
     Dates: start: 20180620
  2. FORXIGA [Concomitant]
     Active Substance: DAPAGLIFLOZIN
     Indication: TYPE 1 DIABETES MELLITUS
     Dosage: 10 MG, QD (1 PILL EVERY DAY)
     Route: 065
     Dates: start: 20191029
  3. FIASP [Suspect]
     Active Substance: INSULIN ASPART
     Indication: TYPE 1 DIABETES MELLITUS
     Dosage: 30 IU, QD (10?10?10)
     Route: 065
     Dates: start: 20200203, end: 20200612
  4. NOVORAPID [Concomitant]
     Active Substance: INSULIN ASPART
     Dosage: 30 IU, QD (10 ? 10 ? 10)
     Route: 065
     Dates: start: 20200612
  5. NOVORAPID [Concomitant]
     Active Substance: INSULIN ASPART
     Indication: TYPE 1 DIABETES MELLITUS
     Dosage: 70 IU, QD (25?20?25)
     Route: 065
     Dates: start: 20131028, end: 20200203

REACTIONS (2)
  - Hyperglycaemia [Recovered/Resolved]
  - Mesenteric panniculitis [Recovered/Resolved]

NARRATIVE: CASE EVENT DATE: 20200611
